FAERS Safety Report 8894178 (Version 1)
Quarter: 2012Q4

REPORT INFORMATION
  Report Type: 
  Country: RU (occurrence: RU)
  Receive Date: 20121108
  Receipt Date: 20121108
  Transmission Date: 20130627
  Serious: Yes (Disabling)
  Sender: FDA-Public Use
  Company Number: RU-RANBAXY-2012R3-61570

PATIENT
  Age: 21 Year
  Sex: Female
  Weight: 60 kg

DRUGS (3)
  1. SOTRET [Suspect]
     Indication: ACNE CYSTIC
     Dosage: 20mg, daily
     Route: 048
     Dates: start: 20121002, end: 20121004
  2. ROZAMENT [Concomitant]
     Indication: ACNE
     Dosage: UNK
     Route: 048
     Dates: start: 201207, end: 20120928
  3. AEVIT [Concomitant]
     Indication: ACNE
     Dosage: UNK
     Route: 061
     Dates: start: 201207, end: 20120928

REACTIONS (1)
  - Dermatitis allergic [Recovered/Resolved]
